FAERS Safety Report 7626369-2 (Version None)
Quarter: 2011Q3

REPORT INFORMATION
  Report Type: 
  Country: None (occurrence: None)
  Receive Date: 20110714
  Receipt Date: 20110705
  Transmission Date: 20111222
  Serious: Yes (Hospitalization)
  Sender: FDA-Public Use
  Company Number: UTC-008395

PATIENT
  Age: 69 Year
  Sex: Female

DRUGS (3)
  1. COUMADIN [Concomitant]
  2. REMODULIN [Suspect]
     Indication: PULMONARY ARTERIAL HYPERTENSION
     Dosage: 53.28 UG/KG (0.037 UG/KG, 1 IN 1 MIN), SUBCUTANEOUS
     Route: 058
     Dates: start: 20090109
  3. REVATIO [Concomitant]

REACTIONS (1)
  - INFUSION SITE INFECTION [None]
